FAERS Safety Report 9998979 (Version 1)
Quarter: 2014Q1

REPORT INFORMATION
  Report Type: Spontaneous
  Country: US (occurrence: None)
  Receive Date: 20140311
  Receipt Date: 20140311
  Transmission Date: 20141002
  Serious: Yes (Other)
  Sender: FDA-Public Use
  Company Number: None

PATIENT
  Sex: Female
  Weight: 63.5 kg

DRUGS (2)
  1. PRO-AIR 2 PUFFS [Suspect]
     Indication: ASTHMA
     Dosage: PRIOR TO 2010 2 PUFFS Q4H PRN PO
  2. VENTOLIN [Suspect]
     Dosage: PRIOR TO 2010 2 PUFFS Q4H PRN PO

REACTIONS (2)
  - Palpitations [None]
  - Drug ineffective [None]
